FAERS Safety Report 8892474 (Version 1)
Quarter: 2012Q4

REPORT INFORMATION
  Report Type: 
  Country: US (occurrence: US)
  Receive Date: 20121107
  Receipt Date: 20121107
  Transmission Date: 20130627
  Serious: No
  Sender: FDA-Public Use
  Company Number: US-AMGEN-USASP2011061549

PATIENT
  Sex: Male

DRUGS (9)
  1. ENBREL [Suspect]
     Indication: PRODUCT USED FOR UNKNOWN INDICATION
     Dosage: 50 mg, qwk
  2. GLUCOSAMINE CHONDROITIN            /01430901/ [Concomitant]
  3. VITAMIN D /00107901/ [Concomitant]
  4. OMEGA 3                            /01334101/ [Concomitant]
  5. B COMPLEX                          /00212701/ [Concomitant]
  6. MULTIVITAMIN                       /00097801/ [Concomitant]
  7. MAGNESIUM [Concomitant]
     Dosage: 500 mg, UNK
  8. ASA [Concomitant]
     Dosage: 81 mg, UNK
  9. LIPOIC ACID [Concomitant]

REACTIONS (2)
  - Injection site pain [Unknown]
  - Injection site swelling [Unknown]
